FAERS Safety Report 9150619 (Version 1)
Quarter: 2013Q1

REPORT INFORMATION
  Report Type: Spontaneous
  Country: US (occurrence: US)
  Receive Date: 20130308
  Receipt Date: 20130308
  Transmission Date: 20140127
  Serious: No
  Sender: FDA-Public Use
  Company Number: US-GLAXOSMITHKLINE-A1007009A

PATIENT
  Age: 66 Year
  Sex: Female

DRUGS (1)
  1. NICORETTE CINNAMON SURGE OTC 4MG [Suspect]
     Indication: EX-TOBACCO USER

REACTIONS (8)
  - Feeling jittery [Recovered/Resolved]
  - Heart rate increased [Recovered/Resolved]
  - Agitation [Recovered/Resolved]
  - Tension [Recovered/Resolved]
  - Headache [Recovered/Resolved]
  - Blood pressure increased [Recovered/Resolved]
  - Overdose [Recovered/Resolved]
  - Drug ineffective [Unknown]
